FAERS Safety Report 7012508-3 (Version None)
Quarter: 2010Q3

REPORT INFORMATION
  Report Type: 
  Country: None (occurrence: None)
  Receive Date: 20100924
  Receipt Date: 20100916
  Transmission Date: 20110219
  Serious: Yes (Other)
  Sender: FDA-Public Use
  Company Number: US-EISAI INC.-E3810-04099-SPO-US

PATIENT
  Sex: Female
  Weight: 88 kg

DRUGS (2)
  1. ACIPHEX [Suspect]
     Route: 048
     Dates: start: 20100101
  2. COZAAR [Concomitant]
     Dates: start: 20050101

REACTIONS (3)
  - ASTHENIA [None]
  - HAEMORRHOIDAL HAEMORRHAGE [None]
  - IRON DEFICIENCY [None]
